FAERS Safety Report 5061173-3 (Version None)
Quarter: 2006Q3

REPORT INFORMATION
  Report Type: 
  Country: None (occurrence: None)
  Receive Date: 20060719
  Receipt Date: 20060719
  Transmission Date: 20061208
  Serious: Yes (Hospitalization)
  Sender: FDA-Public Use
  Company Number: None

PATIENT
  Age: 59 Year
  Sex: Male
  Weight: 93.441 kg

DRUGS (1)
  1. AMPICILLIN [Suspect]
     Dosage: 500 MG QD PO
     Route: 048

REACTIONS (1)
  - NO ADVERSE EFFECT [None]
